FAERS Safety Report 10619163 (Version 2)
Quarter: 2014Q4

REPORT INFORMATION
  Report Type: Spontaneous
  Country: TR (occurrence: TR)
  Receive Date: 20141202
  Receipt Date: 20141217
  Transmission Date: 20150529
  Serious: Yes (Death, Hospitalization)
  Sender: FDA-Public Use
  Company Number: TR-JNJFOC-20141119612

PATIENT
  Age: 61 Year
  Sex: Male

DRUGS (1)
  1. SIMPONI [Suspect]
     Active Substance: GOLIMUMAB
     Indication: RHEUMATOID ARTHRITIS
     Dosage: HAS NOT BEEN APPLIED FOR 4 MONTHS.
     Route: 058
     Dates: start: 20140325, end: 2014

REACTIONS (2)
  - Rheumatic disorder [Not Recovered/Not Resolved]
  - Lung infection [Fatal]

NARRATIVE: CASE EVENT DATE: 2014
